FAERS Safety Report 12631787 (Version 2)
Quarter: 2016Q3

REPORT INFORMATION
  Report Type: Spontaneous
  Country: US (occurrence: US)
  Receive Date: 20160808
  Receipt Date: 20160808
  Transmission Date: 20161109
  Serious: Yes (Other)
  Sender: FDA-Public Use
  Company Number: US-BEH-2016061021

PATIENT
  Sex: Female
  Weight: 60 kg

DRUGS (18)
  1. DIPHENHYDRAMINE. [Concomitant]
     Active Substance: DIPHENHYDRAMINE
  2. PRILOCAINE [Concomitant]
     Active Substance: PRILOCAINE
  3. CELEXA [Concomitant]
     Active Substance: CITALOPRAM HYDROBROMIDE
  4. EPIPEN [Concomitant]
     Active Substance: EPINEPHRINE
  5. TRAMADOL. [Concomitant]
     Active Substance: TRAMADOL
  6. METHOTREXATE. [Concomitant]
     Active Substance: METHOTREXATE
  7. LIDOCAINE. [Concomitant]
     Active Substance: LIDOCAINE
  8. VERAPAMIL [Concomitant]
     Active Substance: VERAPAMIL HYDROCHLORIDE
  9. FOLIC ACID. [Concomitant]
     Active Substance: FOLIC ACID
  10. ROCEPHIN [Concomitant]
     Active Substance: CEFTRIAXONE SODIUM
  11. HIZENTRA [Suspect]
     Active Substance: HUMAN IMMUNOGLOBULIN G
     Indication: IMMUNODEFICIENCY COMMON VARIABLE
     Route: 058
  12. ACETAMINOPHEN. [Concomitant]
     Active Substance: ACETAMINOPHEN
  13. CORTICOSTEROIDS [Concomitant]
     Active Substance: CORTICOSTEROID NOS
  14. PANTOPRAZOLE [Concomitant]
     Active Substance: PANTOPRAZOLE SODIUM
  15. XANAX [Concomitant]
     Active Substance: ALPRAZOLAM
  16. CHLORDIAZEPOX-AMITRIPTYLINE [Concomitant]
  17. LEVOTHYROXINE. [Concomitant]
     Active Substance: LEVOTHYROXINE
  18. MOBIC [Concomitant]
     Active Substance: MELOXICAM

REACTIONS (2)
  - Drug ineffective [Unknown]
  - Ill-defined disorder [Unknown]
